FAERS Safety Report 6264385-6 (Version None)
Quarter: 2009Q3

REPORT INFORMATION
  Report Type: 
  Country: None (occurrence: None)
  Receive Date: 20090710
  Receipt Date: 20090629
  Transmission Date: 20100115
  Serious: Yes (Hospitalization, Disabling)
  Sender: FDA-Public Use
  Company Number: B0581104A

PATIENT
  Sex: Male

DRUGS (6)
  1. ONDANSETRON HCL [Suspect]
     Indication: DRUG USE FOR UNKNOWN INDICATION
     Dosage: 1UNIT TWICE PER DAY
     Route: 048
     Dates: start: 20090407, end: 20090410
  2. CAMPTOSAR [Suspect]
     Dosage: 304MG SINGLE DOSE
     Route: 042
     Dates: start: 20090407, end: 20090407
  3. FLUOROURACIL [Suspect]
     Dosage: 4725MG SINGLE DOSE
     Route: 042
     Dates: start: 20090407, end: 20090407
  4. FOLINATE DE CALCIUM [Suspect]
     Dosage: 676MG SINGLE DOSE
     Route: 042
     Dates: start: 20090407, end: 20090407
  5. SULFATE ATROPINE [Suspect]
     Indication: DRUG USE FOR UNKNOWN INDICATION
     Route: 051
     Dates: start: 20090407
  6. SOLU-MEDROL [Suspect]
     Indication: DRUG USE FOR UNKNOWN INDICATION
     Route: 054
     Dates: start: 20090407

REACTIONS (6)
  - APHASIA [None]
  - CONFUSIONAL STATE [None]
  - DEMYELINATION [None]
  - HEMIANOPIA [None]
  - HEMIPARESIS [None]
  - IIIRD NERVE DISORDER [None]
